FAERS Safety Report 16141476 (Version 1)
Quarter: 2019Q1

REPORT INFORMATION
  Report Type: Spontaneous
  Country: US (occurrence: US)
  Receive Date: 20190226
  Receipt Date: 20190226
  Transmission Date: 20190418
  Serious: No
  Sender: FDA-Public Use
  Company Number: None

PATIENT
  Age: 74 Year
  Sex: Female
  Weight: 81.65 kg

DRUGS (5)
  1. VITAMIN B12 [Concomitant]
     Active Substance: CYANOCOBALAMIN
  2. SYNTHROID [Concomitant]
     Active Substance: LEVOTHYROXINE SODIUM
  3. VIT B [Concomitant]
     Active Substance: VITAMIN B
  4. RED YEAST RICE [Concomitant]
     Active Substance: DIETARY SUPPLEMENT
  5. LOTHYRONINE GENERIC FOR CYTOMEL [Suspect]
     Active Substance: LIOTHYRONINE
     Indication: HYPOTHYROIDISM
     Dosage: ?          QUANTITY:5 UG MICROGRAM(S);?
     Route: 048
     Dates: start: 20180410, end: 20181212

REACTIONS (2)
  - Pollakiuria [None]
  - Urinary incontinence [None]

NARRATIVE: CASE EVENT DATE: 20190111
